FAERS Safety Report 4734162-3 (Version None)
Quarter: 2005Q3

REPORT INFORMATION
  Report Type: 
  Country: None (occurrence: None)
  Receive Date: 20050803
  Receipt Date: 20050803
  Transmission Date: 20060218
  Serious: No
  Sender: FDA-Public Use
  Company Number: None

PATIENT
  Age: 36 Year
  Sex: Male
  Weight: 71.2147 kg

DRUGS (4)
  1. RETROVIR [Suspect]
     Indication: HYPERBILIRUBINAEMIA
     Dosage: 300MG PO BID
     Route: 048
     Dates: start: 20041010, end: 20050802
  2. NORVIR [Suspect]
     Dosage: 100MG PO QD
     Route: 048
     Dates: start: 20041010, end: 20050802
  3. ZIAGEN [Suspect]
     Dosage: 300 MG ONE PO QD
     Route: 048
     Dates: start: 20041010, end: 20050802
  4. REYATAZ [Suspect]
     Dosage: 150MG TWO PO QD
     Route: 048
     Dates: start: 20041010, end: 20050801

REACTIONS (2)
  - BLOOD BILIRUBIN INCREASED [None]
  - OCULAR ICTERUS [None]
